FAERS Safety Report 8994625 (Version 2)
Quarter: 2013Q1

REPORT INFORMATION
  Report Type: Spontaneous
  Country: US (occurrence: None)
  Receive Date: 20121221
  Receipt Date: 20121226
  Transmission Date: 20140127
  Serious: Yes (Other)
  Sender: FDA-Public Use
  Company Number: 08-AUR-03822

PATIENT
  Age: 55 Year
  Sex: Male

DRUGS (4)
  1. CITALOPRAM [Suspect]
     Indication: PANIC DISORDER
     Dosage: (1 D)
  2. RIFAMPICIN [Suspect]
     Indication: OSTEOMYELITIS
     Route: 048
  3. CLONAZEPAM(CLONAZEPAM) [Concomitant]
  4. SULFAMETHOXAZOLE W/TRIMETHOPRIM(BACTRIM) [Concomitant]

REACTIONS (6)
  - Drug interaction [None]
  - Panic reaction [None]
  - Gastrointestinal tract irritation [None]
  - Medication error [None]
  - Drug effect decreased [None]
  - Crying [None]
